FAERS Safety Report 11137713 (Version 1)
Quarter: 2015Q2

REPORT INFORMATION
  Report Type: Spontaneous
  Country: US (occurrence: US)
  Receive Date: 20150526
  Receipt Date: 20150526
  Transmission Date: 20150821
  Serious: No
  Sender: FDA-Public Use
  Company Number: US-PFIZER INC-2015171869

PATIENT
  Age: 62 Year
  Sex: Male

DRUGS (3)
  1. ATIVAN [Concomitant]
     Active Substance: LORAZEPAM
     Dosage: UNK
  2. LYRICA [Suspect]
     Active Substance: PREGABALIN
     Indication: CARPAL TUNNEL SYNDROME
     Dosage: 150 MG, 2X/DAY (150 MG IN MORNING AND 150 MG AT NIGHT)
  3. TRAMADOL [Concomitant]
     Active Substance: TRAMADOL
     Dosage: UNK

REACTIONS (2)
  - Abnormal dreams [Recovered/Resolved]
  - Somnolence [Recovered/Resolved]
